FAERS Safety Report 13291813 (Version 2)
Quarter: 2017Q1

REPORT INFORMATION
  Report Type: Spontaneous
  Country: IT (occurrence: IT)
  Receive Date: 20170303
  Receipt Date: 20170321
  Transmission Date: 20170428
  Serious: Yes (Life-Threatening)
  Sender: FDA-Public Use
  Company Number: IT-009507513-1701ITA009382

PATIENT
  Age: 67 Year
  Sex: Male
  Weight: 64 kg

DRUGS (3)
  1. CUBICIN [Suspect]
     Active Substance: DAPTOMYCIN
     Indication: INTERVERTEBRAL DISCITIS
     Dosage: 350 MG POWDER FOR CONCENTRATE FOR SOLUTION FOR INFUSION, 700 MG, QD
     Route: 042
     Dates: start: 20161216, end: 20170103
  2. TEXTAZO [Concomitant]
     Active Substance: PIPERACILLIN SODIUM\TAZOBACTAM SODIUM
     Indication: INTERVERTEBRAL DISCITIS
     Dosage: 13.5 G, UNK
     Route: 042
     Dates: start: 20161216, end: 20170103
  3. RIFADIN [Concomitant]
     Active Substance: RIFAMPIN
     Indication: INTERVERTEBRAL DISCITIS
     Dosage: 600 MG, UNK . STRENGTH: 600MG/10ML
     Route: 042
     Dates: start: 20161216, end: 20170103

REACTIONS (2)
  - Respiratory failure [Recovered/Resolved]
  - Pyrexia [Recovered/Resolved]

NARRATIVE: CASE EVENT DATE: 20170101
